FAERS Safety Report 6104401-5 (Version None)
Quarter: 2009Q1

REPORT INFORMATION
  Report Type: 
  Country: None (occurrence: None)
  Receive Date: 20090305
  Receipt Date: 20090224
  Transmission Date: 20090719
  Serious: Yes (Other)
  Sender: FDA-Public Use
  Company Number: US-JNJFOC-20090206263

PATIENT
  Age: 6 Year
  Sex: Male
  Weight: 19.96 kg

DRUGS (2)
  1. TYLENOL (CAPLET) [Suspect]
     Indication: INFLUENZA
     Route: 048
  2. TYLENOL (CAPLET) [Suspect]
     Indication: PYREXIA
     Route: 048

REACTIONS (4)
  - HYPERSENSITIVITY [None]
  - LIP SWELLING [None]
  - PENILE SWELLING [None]
  - VOMITING [None]
